FAERS Safety Report 24205917 (Version 3)
Quarter: 2024Q3

REPORT INFORMATION
  Report Type: Spontaneous
  Country: GB (occurrence: GB)
  Receive Date: 20240813
  Receipt Date: 20240823
  Transmission Date: 20241016
  Serious: Yes (Other)
  Sender: MYLAN
  Company Number: GB-MYLANLABS-2024M1072290

PATIENT
  Age: 39 Year
  Sex: Male

DRUGS (2)
  1. CLOZARIL [Suspect]
     Active Substance: CLOZAPINE
     Indication: Schizophrenia
     Dosage: 200 MILLIGRAM, BID (200 MG IN MORNING 200 MG IN EVENING)
     Route: 048
     Dates: start: 20240708, end: 20240808
  2. CYCLOSPORINE [Concomitant]
     Active Substance: CYCLOSPORINE
     Indication: Psoriasis
     Dosage: 75 MILLIGRAM, BID (TWICE DAILY)
     Route: 048
     Dates: start: 20240801

REACTIONS (4)
  - Eosinophilia [Recovering/Resolving]
  - Psoriasis [Recovering/Resolving]
  - Leukocytosis [Recovering/Resolving]
  - Therapy interrupted [Unknown]

NARRATIVE: CASE EVENT DATE: 20240801
